FAERS Safety Report 5675938-8 (Version None)
Quarter: 2008Q1

REPORT INFORMATION
  Report Type: 
  Country: None (occurrence: None)
  Receive Date: 20080321
  Receipt Date: 20080320
  Transmission Date: 20080703
  Serious: Yes (Other)
  Sender: FDA-Public Use
  Company Number: D0056547A

PATIENT
  Sex: Male

DRUGS (2)
  1. ARIXTRA [Suspect]
     Route: 058
  2. EMBOLEX [Concomitant]
     Route: 058
     Dates: end: 20080101

REACTIONS (2)
  - BLOOD COUNT ABNORMAL [None]
  - THROMBOCYTOPENIA [None]
